FAERS Safety Report 8455273-5 (Version None)
Quarter: 2012Q2

REPORT INFORMATION
  Report Type: 
  Country: None (occurrence: None)
  Receive Date: 20120621
  Receipt Date: 20120614
  Transmission Date: 20120825
  Serious: Yes (Hospitalization, Other)
  Sender: FDA-Public Use
  Company Number: BE-AMGEN-BELCT2012036543

PATIENT
  Age: 40 Year
  Sex: Female
  Weight: 86 kg

DRUGS (32)
  1. LITICAN [Concomitant]
     Dosage: 50 MG, UNK
     Route: 042
     Dates: start: 20110209, end: 20110406
  2. DIFLUCAN [Concomitant]
     Dosage: 50 MG, UNK
     Route: 048
     Dates: start: 20110419, end: 20110423
  3. STOMATOLOGICALS, MOUTH PREPARATIONS [Concomitant]
     Dosage: UNK UNK, UNK
     Route: 050
     Dates: start: 20110413, end: 20110421
  4. DENOSUMAB [Suspect]
     Indication: BREAST CANCER
     Dosage: UNK UNK, UNK
     Route: 058
     Dates: start: 20110215
  5. MEDROL [Concomitant]
     Dosage: UNK
     Route: 048
     Dates: start: 20110412, end: 20110416
  6. LANSOPRAZOLE [Concomitant]
     Dosage: 30 MG, UNK
     Route: 048
     Dates: start: 20070615, end: 20110406
  7. CACIT VITAMINE D3 [Concomitant]
     Dosage: 1.25 G, UNK
     Route: 048
     Dates: start: 20110216
  8. NEUPOGEN [Concomitant]
     Route: 058
     Dates: start: 20110225, end: 20110228
  9. ZOLPIDEM TATRATE [Concomitant]
     Dosage: 10 MG, UNK
     Route: 048
     Dates: start: 20110209, end: 20110926
  10. MOTILIUM [Concomitant]
     Dosage: 10 MG, UNK
     Route: 048
     Dates: start: 20110209, end: 20110213
  11. TRAMADOL HCL [Concomitant]
     Dosage: 100 MG, UNK
     Route: 042
     Dates: start: 20110128, end: 20110225
  12. SOLU-MEDROL [Concomitant]
     Dosage: 80 MG, UNK
     Route: 042
     Dates: start: 20110209, end: 20110419
  13. LEVOFLOXACIN [Concomitant]
     Dosage: UNK MG, UNK
     Route: 048
     Dates: start: 20110327, end: 20110429
  14. ACETAMINOPHEN [Concomitant]
     Dosage: 1 G, UNK
     Route: 048
     Dates: start: 20110209, end: 20110404
  15. ONDANSETRON [Concomitant]
     Dosage: 8 MG, UNK
     Route: 042
     Dates: start: 20110209, end: 20110215
  16. PAROXETINE HYDROCHLORIDE [Concomitant]
     Dosage: 40 MG, UNK
     Route: 048
     Dates: start: 20060615, end: 20110705
  17. RIOPAN [Concomitant]
     Dosage: 800 MG, UNK
     Route: 048
     Dates: start: 20110406, end: 20110412
  18. IMODIUM [Concomitant]
     Dosage: UNK UNK, UNK
     Route: 060
     Dates: start: 20110419, end: 20110420
  19. TAXOTERE [Concomitant]
     Dosage: 100 MG/M2, Q3WK
     Dates: start: 20110413, end: 20110525
  20. ZANTAC [Concomitant]
     Dosage: 50 MG, UNK
     Route: 042
     Dates: start: 20110215, end: 20110406
  21. PERFUSALGAN [Concomitant]
     Dosage: 1 G, UNK
     Route: 042
     Dates: start: 20110128, end: 20110419
  22. NEULASTA [Concomitant]
     Dosage: UNK UNK, UNK
     Route: 058
     Dates: start: 20110303, end: 20110525
  23. ATACAND [Concomitant]
     Dosage: 8 MG, UNK
     Route: 048
     Dates: start: 20100615, end: 20110705
  24. LITICAN [Concomitant]
  25. LORAZEPAM [Concomitant]
     Dosage: 2.5 MG, UNK
     Route: 048
     Dates: start: 20110302
  26. EMEND [Concomitant]
     Dosage: UNK UNK, UNK
     Route: 048
     Dates: start: 20110209, end: 20110305
  27. BIOTENE [Concomitant]
     Dosage: UNK UNK, UNK
     Route: 050
     Dates: start: 20110413, end: 20110419
  28. FRAXODI [Concomitant]
     Dosage: UNK UNK, UNK
     Route: 058
     Dates: start: 20110128, end: 20110206
  29. IBUPROFEN [Concomitant]
     Dosage: 400 MG, UNK
     Route: 048
     Dates: start: 20110127, end: 20110208
  30. VALERIAN EXTRACT [Concomitant]
     Dosage: UNK UNK, UNK
     Route: 048
     Dates: start: 20110209, end: 20110210
  31. BISOPROLOL FUMARATE [Concomitant]
     Dosage: 5 MG, UNK
     Route: 048
     Dates: start: 20050615, end: 20110705
  32. CARBOBEL [Concomitant]
     Dosage: 70 MG, UNK
     Route: 048
     Dates: start: 20110413, end: 20110504

REACTIONS (1)
  - PAIN IN JAW [None]
